FAERS Safety Report 5338779-7 (Version None)
Quarter: 2007Q2

REPORT INFORMATION
  Report Type: 
  Country: None (occurrence: None)
  Receive Date: 20070322
  Receipt Date: 20060322
  Transmission Date: 20071010
  Serious: Yes (Other)
  Sender: FDA-Public Use
  Company Number: 200610865BCC

PATIENT
  Age: 75 Year
  Sex: Female
  Weight: 83.9154 kg

DRUGS (16)
  1. ALEVE [Suspect]
     Indication: ARTHRALGIA
     Dosage: 220 MG, BID, ORAL
     Route: 048
     Dates: start: 20060201
  2. ALEVE [Suspect]
     Indication: ARTHRITIS
     Dosage: 220 MG, BID, ORAL
     Route: 048
     Dates: start: 20060201
  3. NAPROXEN [Suspect]
     Dosage: }= 375 MG
  4. TYLENOL [Concomitant]
  5. NEURONTIN [Concomitant]
  6. GARLIC [Concomitant]
  7. ASCORBIC ACID [Concomitant]
  8. VITAMIN E [Concomitant]
  9. GLUCOSAMINE [Concomitant]
  10. VITAMIN B COMPLEX CAP [Concomitant]
  11. LORAZEPAM [Concomitant]
  12. CALCIUM CHLORIDE [Concomitant]
  13. CENTRUM SILVER [Concomitant]
  14. AMBIEN [Concomitant]
  15. FLEXERIL [Concomitant]
  16. WATER PILL [Concomitant]

REACTIONS (1)
  - RECTAL HAEMORRHAGE [None]
